FAERS Safety Report 8370973-3 (Version None)
Quarter: 2012Q2

REPORT INFORMATION
  Report Type: 
  Country: None (occurrence: None)
  Receive Date: 20120518
  Receipt Date: 20120510
  Transmission Date: 20120825
  Serious: Yes (Hospitalization, Other)
  Sender: FDA-Public Use
  Company Number: US-MERCK-1201USA00749

PATIENT
  Age: 43 Year
  Sex: Female

DRUGS (7)
  1. FOSAMAX [Suspect]
     Indication: OSTEOPENIA
     Route: 048
     Dates: start: 20040101, end: 20080904
  2. NEXIUM [Concomitant]
     Route: 065
     Dates: start: 20000101
  3. ADVAIR DISKUS 100/50 [Concomitant]
     Indication: CHRONIC OBSTRUCTIVE PULMONARY DISEASE
     Route: 065
     Dates: start: 20060101
  4. HORMONES (UNSPECIFIED) [Concomitant]
     Route: 065
     Dates: start: 20050101
  5. ALENDRONATE SODIUM [Suspect]
     Indication: OSTEOPENIA
     Route: 048
     Dates: start: 20080905, end: 20100617
  6. ALBUTEROL [Concomitant]
     Route: 065
     Dates: start: 20060101
  7. LOVENOX [Concomitant]
     Indication: CHRONIC OBSTRUCTIVE PULMONARY DISEASE
     Route: 065
     Dates: start: 19990101

REACTIONS (53)
  - COLON CANCER [None]
  - OSTEOMYELITIS [None]
  - ENDOMETRIOSIS [None]
  - DERMATITIS CONTACT [None]
  - ORAL INFECTION [None]
  - OPEN WOUND [None]
  - FISTULA DISCHARGE [None]
  - EXOSTOSIS [None]
  - OSTEONECROSIS OF JAW [None]
  - DEPRESSION [None]
  - DENTAL CARIES [None]
  - GINGIVAL INFECTION [None]
  - ANXIETY [None]
  - OVARIAN CYST [None]
  - COMPLEX REGIONAL PAIN SYNDROME [None]
  - PERIODONTAL DISEASE [None]
  - IMPAIRED GASTRIC EMPTYING [None]
  - DEHYDRATION [None]
  - EXPOSED BONE IN JAW [None]
  - DYSLIPIDAEMIA [None]
  - EROSIVE OESOPHAGITIS [None]
  - SINUS DISORDER [None]
  - IMPAIRED HEALING [None]
  - CERVIX CARCINOMA [None]
  - FALL [None]
  - JAW DISORDER [None]
  - TOOTH ABSCESS [None]
  - PANIC ATTACK [None]
  - ROAD TRAFFIC ACCIDENT [None]
  - SINOBRONCHITIS [None]
  - APPENDICITIS [None]
  - INAPPROPRIATE ANTIDIURETIC HORMONE SECRETION [None]
  - HYPERCALCAEMIA [None]
  - FISTULA [None]
  - URINARY TRACT INFECTION [None]
  - TOOTH INFECTION [None]
  - TOOTH DISORDER [None]
  - MUSCULOSKELETAL PAIN [None]
  - DYSPHAGIA [None]
  - GINGIVAL BLEEDING [None]
  - CANDIDIASIS [None]
  - ABDOMINAL HERNIA [None]
  - CONVULSION [None]
  - TRIGEMINAL NEURALGIA [None]
  - NASAL SEPTUM DEVIATION [None]
  - PAIN [None]
  - THROMBOSIS [None]
  - ASTHMA [None]
  - DELIRIUM [None]
  - STAPHYLOCOCCAL INFECTION [None]
  - PNEUMONIA [None]
  - KERATOSIS PILARIS [None]
  - CHRONIC SINUSITIS [None]
